FAERS Safety Report 7988876-2 (Version None)
Quarter: 2011Q4

REPORT INFORMATION
  Report Type: 
  Country: None (occurrence: None)
  Receive Date: 20111215
  Receipt Date: 20111215
  Transmission Date: 20120403
  Serious: Yes (Life-Threatening, Disabling, Other)
  Sender: FDA-Public Use
  Company Number: None

PATIENT
  Age: 25 Year
  Sex: Male
  Weight: 81.6475 kg

DRUGS (4)
  1. HALDOL [Concomitant]
  2. RISPERDAL [Suspect]
     Indication: SCHIZOPHRENIA
     Dosage: EVERY DAY SEVERE JOINT PAIN DOUBLE VISION
     Dates: start: 20100101, end: 20111105
  3. RISPERDAL [Suspect]
     Indication: BIPOLAR DISORDER
     Dosage: EVERY DAY SEVERE JOINT PAIN DOUBLE VISION
     Dates: start: 20100101, end: 20111105
  4. SEROQUEL [Concomitant]

REACTIONS (2)
  - PAIN [None]
  - ARTHRALGIA [None]
